FAERS Safety Report 19073326 (Version 1)
Quarter: 2021Q1

REPORT INFORMATION
  Report Type: Spontaneous
  Country: AU (occurrence: AU)
  Receive Date: 20210330
  Receipt Date: 20210330
  Transmission Date: 20210420
  Serious: Yes (Other)
  Sender: FDA-Public Use
  Company Number: AU-SUN PHARMACEUTICAL INDUSTRIES LTD-2021R1-288169

PATIENT
  Age: 63 Year
  Sex: Female

DRUGS (4)
  1. FLUOROMETHOLONE. [Suspect]
     Active Substance: FLUOROMETHOLONE
     Indication: OCULAR ROSACEA
  2. DOXYCYCLINE. [Suspect]
     Active Substance: DOXYCYCLINE
     Indication: OCULAR ROSACEA
  3. FLUOROMETHOLONE. [Suspect]
     Active Substance: FLUOROMETHOLONE
     Indication: CORNEAL NEOVASCULARISATION
     Dosage: UNK, BID
     Route: 065
  4. DOXYCYCLINE. [Suspect]
     Active Substance: DOXYCYCLINE
     Indication: CORNEAL NEOVASCULARISATION
     Dosage: 100 MILLIGRAM, DAILY
     Route: 048

REACTIONS (2)
  - Disease progression [Unknown]
  - Visual acuity reduced [Unknown]
